FAERS Safety Report 6835780-9 (Version None)
Quarter: 2010Q3

REPORT INFORMATION
  Report Type: 
  Country: None (occurrence: None)
  Receive Date: 20100713
  Receipt Date: 20100708
  Transmission Date: 20110219
  Serious: Yes (Hospitalization)
  Sender: FDA-Public Use
  Company Number: US-ASTRAZENECA-2010SE31750

PATIENT
  Age: 56 Year
  Sex: Female
  Weight: 90.7 kg

DRUGS (5)
  1. SEROQUEL XR [Suspect]
     Indication: SLEEP DISORDER
     Route: 048
     Dates: start: 20080101, end: 20090101
  2. SEROQUEL XR [Suspect]
     Indication: AFFECTIVE DISORDER
     Route: 048
     Dates: start: 20080101, end: 20090101
  3. SEROQUEL XR [Suspect]
     Route: 048
     Dates: start: 20090101
  4. SEROQUEL XR [Suspect]
     Route: 048
     Dates: start: 20090101
  5. VOLTAREN [Suspect]

REACTIONS (4)
  - ASTHENIA [None]
  - HAEMOGLOBIN DECREASED [None]
  - LARGE INTESTINAL ULCER HAEMORRHAGE [None]
  - TRANSFUSION [None]
